FAERS Safety Report 22273654 (Version 2)
Quarter: 2023Q2

REPORT INFORMATION
  Report Type: Spontaneous
  Country: IT (occurrence: IT)
  Receive Date: 20230502
  Receipt Date: 20230529
  Transmission Date: 20230722
  Serious: Yes (Hospitalization)
  Sender: FDA-Public Use
  Company Number: None

PATIENT
  Age: 66 Year
  Sex: Male

DRUGS (1)
  1. AMOXICILLIN [Suspect]
     Active Substance: AMOXICILLIN
     Indication: Dermatitis
     Dosage: 2 G, QD (DOSAGGIO: 2UNITA DI MISURA: GRAMMI FREQUENZA SOMMINISTRAZIONE: QUOTIDIANA VIA SOMMINISTRAZI
     Route: 048
     Dates: start: 20220705, end: 20220715

REACTIONS (3)
  - Urticaria [Recovering/Resolving]
  - Rash pruritic [Recovering/Resolving]
  - Angioedema [Recovering/Resolving]

NARRATIVE: CASE EVENT DATE: 20220715
